FAERS Safety Report 9033573 (Version 1)
Quarter: 2013Q1

REPORT INFORMATION
  Report Type: Spontaneous
  Country: PT (occurrence: PT)
  Receive Date: 20130128
  Receipt Date: 20130128
  Transmission Date: 20140127
  Serious: Yes (Life-Threatening, Hospitalization, Disabling)
  Sender: FDA-Public Use
  Company Number: PHHY2013PT007195

PATIENT
  Age: 28 Year
  Sex: Male
  Weight: 55 kg

DRUGS (6)
  1. AMOXICILLIN TRIHYDRATE+POTASSIUM CLAVULANATE [Suspect]
     Indication: INFECTION
     Dosage: 1 DF, BID
     Route: 048
     Dates: start: 20120207, end: 20120215
  2. SUCRALFATO MYLAN [Concomitant]
     Indication: PROPHYLAXIS
     Dosage: 1 DF, BID
     Route: 048
     Dates: start: 20120207, end: 20120217
  3. BUSCOPAN COMPOSITUM N [Concomitant]
     Indication: PAIN
     Route: 048
  4. LORAZEPAM [Concomitant]
     Indication: ANXIETY
     Route: 048
  5. DIAZEPAM [Concomitant]
     Indication: ANXIETY
     Route: 048
  6. ULTRAMIDOL [Concomitant]
     Indication: ANXIETY
     Route: 048

REACTIONS (8)
  - Homicidal ideation [Unknown]
  - Intentional self-injury [Unknown]
  - Suicidal ideation [Unknown]
  - Toxicity to various agents [Unknown]
  - Malaise [Unknown]
  - Pain [Unknown]
  - Acute psychosis [Unknown]
  - Aggression [Unknown]
